FAERS Safety Report 8736411 (Version 2)
Quarter: 2013Q2

REPORT INFORMATION
  Report Type: Spontaneous
  Country: BR (occurrence: BR)
  Receive Date: 20120822
  Receipt Date: 20130619
  Transmission Date: 20140414
  Serious: No
  Sender: FDA-Public Use
  Company Number: BR-ROCHE-1102696

PATIENT
  Sex: Female
  Weight: 70 kg

DRUGS (1)
  1. ROACUTAN [Suspect]
     Indication: ACNE
     Route: 048

REACTIONS (1)
  - Pregnancy [Unknown]
